FAERS Safety Report 15104869 (Version 1)
Quarter: 2018Q3

REPORT INFORMATION
  Report Type: Spontaneous
  Country: None (occurrence: US)
  Receive Date: 20180703
  Receipt Date: 20180703
  Transmission Date: 20181010
  Serious: No
  Sender: FDA-Public Use
  Company Number: US-PRESTIGE BRANDS -2051325

PATIENT

DRUGS (1)
  1. NIX [Suspect]
     Active Substance: PERMETHRIN

REACTIONS (1)
  - Drug ineffective [None]
